FAERS Safety Report 17080762 (Version 2)
Quarter: 2020Q1

REPORT INFORMATION
  Report Type: Spontaneous
  Country: FR (occurrence: FR)
  Receive Date: 20191127
  Receipt Date: 20200305
  Transmission Date: 20200409
  Serious: Yes (Other)
  Sender: FDA-Public Use
  Company Number: FR-SA-2019SA327491

PATIENT
  Age: 51 Year
  Sex: Male

DRUGS (1)
  1. MYOZYME [Suspect]
     Active Substance: ALGLUCOSIDASE ALFA
     Indication: GLYCOGEN STORAGE DISEASE TYPE II
     Dosage: UNK, 24 VIALS/BOTTLES, QOW
     Route: 065
     Dates: start: 200811

REACTIONS (1)
  - Gastrointestinal stromal tumour [Unknown]
